FAERS Safety Report 24196085 (Version 1)
Quarter: 2024Q3

REPORT INFORMATION
  Report Type: Spontaneous
  Country: FR (occurrence: FR)
  Receive Date: 20240809
  Receipt Date: 20240809
  Transmission Date: 20241016
  Serious: Yes (Life-Threatening)
  Sender: SANDOZ
  Company Number: None

PATIENT
  Age: 48 Year
  Sex: Male
  Weight: 85 kg

DRUGS (9)
  1. DUPILUMAB [Suspect]
     Active Substance: DUPILUMAB
     Indication: Asthma
     Dosage: 1.000DF BIW
     Route: 058
     Dates: start: 2022
  2. NASONEX [Suspect]
     Active Substance: MOMETASONE FUROATE
     Indication: Hypersensitivity
     Dosage: 4.000DF QD
     Route: 045
  3. PREDNISONE [Suspect]
     Active Substance: PREDNISONE
     Indication: Asthma
     Dosage: 15.000MG QD
     Route: 048
     Dates: start: 2017
  4. SYMBICORT [Suspect]
     Active Substance: BUDESONIDE\FORMOTEROL FUMARATE DIHYDRATE
     Indication: Asthma
     Dosage: 3.000DF QD
     Route: 055
     Dates: start: 2017
  5. EBASTINE [Concomitant]
     Active Substance: EBASTINE
     Indication: Product used for unknown indication
     Route: 065
  6. SODIUM ASCORBATE [Concomitant]
     Active Substance: SODIUM ASCORBATE
     Indication: Product used for unknown indication
     Route: 065
  7. CHOLECALCIFEROL [Concomitant]
     Active Substance: CHOLECALCIFEROL
     Indication: Product used for unknown indication
     Dosage: UNK
     Route: 065
  8. PANTOPRAZOLE [Concomitant]
     Active Substance: PANTOPRAZOLE
     Indication: Product used for unknown indication
     Route: 065
  9. SPIRIVA [Concomitant]
     Active Substance: TIOTROPIUM BROMIDE MONOHYDRATE
     Indication: Product used for unknown indication
     Route: 065

REACTIONS (1)
  - Pleurisy bacterial [Recovering/Resolving]

NARRATIVE: CASE EVENT DATE: 20240531
